FAERS Safety Report 12127714 (Version 2)
Quarter: 2016Q1

REPORT INFORMATION
  Report Type: Report from Study
  Country: US (occurrence: US)
  Receive Date: 20160229
  Receipt Date: 20160316
  Transmission Date: 20160526
  Serious: Yes (Hospitalization)
  Sender: FDA-Public Use
  Company Number: US-ACTELION-A-US2016-131820

PATIENT
  Age: 68 Year
  Sex: Female

DRUGS (14)
  1. RIOCIGUAT [Concomitant]
     Active Substance: RIOCIGUAT
  2. PREMARIN [Concomitant]
     Active Substance: ESTROGENS, CONJUGATED
  3. WARFARIN [Concomitant]
     Active Substance: WARFARIN
  4. CARAFATE [Concomitant]
     Active Substance: SUCRALFATE
  5. DOXYCYCLINE. [Concomitant]
     Active Substance: DOXYCYCLINE
  6. OMEPRAZOLE. [Concomitant]
     Active Substance: OMEPRAZOLE
  7. CYMBALTA [Concomitant]
     Active Substance: DULOXETINE HYDROCHLORIDE
  8. LASIX [Concomitant]
     Active Substance: FUROSEMIDE
  9. MACITENTAN [Suspect]
     Active Substance: MACITENTAN
     Indication: PULMONARY HYPERTENSION
     Dosage: 10 MG, QD
     Route: 048
     Dates: start: 20160125
  10. ASA [Concomitant]
     Active Substance: ASPIRIN
  11. VITAMIN D3 [Concomitant]
     Active Substance: CHOLECALCIFEROL
  12. KLOR-CON [Concomitant]
     Active Substance: POTASSIUM CHLORIDE
  13. JANTOVEN [Concomitant]
     Active Substance: WARFARIN SODIUM
  14. VALIUM [Concomitant]
     Active Substance: DIAZEPAM

REACTIONS (10)
  - Hypotension [Recovered/Resolved]
  - Pain in extremity [Unknown]
  - Muscular weakness [Unknown]
  - Gastrooesophageal reflux disease [Unknown]
  - Vomiting [Recovered/Resolved]
  - Gastroenteritis [Recovered/Resolved]
  - Dyspnoea [Recovered/Resolved]
  - Parosmia [Recovered/Resolved]
  - Diarrhoea [Recovered/Resolved]
  - Malaise [Recovered/Resolved]

NARRATIVE: CASE EVENT DATE: 201601
